FAERS Safety Report 7772808-6 (Version None)
Quarter: 2011Q3

REPORT INFORMATION
  Report Type: 
  Country: None (occurrence: None)
  Receive Date: 20110922
  Receipt Date: 20100811
  Transmission Date: 20111222
  Serious: Yes (Other)
  Sender: FDA-Public Use
  Company Number: US-ASTRAZENECA-2007UW21684

PATIENT
  Age: 514 Month
  Sex: Female
  Weight: 117.9 kg

DRUGS (16)
  1. SEROQUEL [Suspect]
     Indication: INSOMNIA
     Dosage: 25 MG TO 200 MG
     Route: 048
     Dates: start: 20050301, end: 20060101
  2. SEROQUEL [Suspect]
     Indication: STRESS
     Dosage: 25 MG TO 200 MG
     Route: 048
     Dates: start: 20050301, end: 20060101
  3. ALTACE [Concomitant]
     Dosage: 5 MG ONE IN MORNING
     Dates: start: 20060101
  4. HYZAAR [Concomitant]
     Dosage: 100/25 ONE EVERY DAY
     Dates: start: 20050101
  5. SEROQUEL [Suspect]
     Dosage: 25 MG ONE TO TWO AT NIGHT, 200 MG TWO TABLETS EVERY DAY
     Route: 048
     Dates: start: 20050101
  6. SEROQUEL [Suspect]
     Route: 048
     Dates: start: 20060626
  7. RISPERDAL [Concomitant]
     Indication: INSOMNIA
     Dates: start: 20050901, end: 20060101
  8. XANAX [Concomitant]
     Dosage: 1 MG ONE EVERY NIGHT
     Dates: start: 20060101
  9. LIPITOR [Concomitant]
     Dosage: 10 MG ONE EVERY DAY
     Dates: start: 20060101
  10. AVANDIA [Concomitant]
     Dosage: 8 MG ONE EVERY DAY
     Dates: start: 20060101
  11. SEROQUEL [Suspect]
     Route: 048
     Dates: start: 20060626
  12. ASPIRIN [Concomitant]
     Dosage: 81 MG ONE EVERY DAY
     Dates: start: 20060101
  13. PHENTERMINE [Concomitant]
     Indication: WEIGHT CONTROL
  14. SEROQUEL [Suspect]
     Dosage: 25 MG ONE TO TWO AT NIGHT, 200 MG TWO TABLETS EVERY DAY
     Route: 048
     Dates: start: 20050101
  15. RISPERDAL [Concomitant]
     Indication: STRESS
     Dates: start: 20050901, end: 20060101
  16. GLYBURIDE/METF [Concomitant]
     Dosage: 5/500 TWO TWO TIMES A DAY
     Dates: start: 20060101

REACTIONS (4)
  - OBESITY [None]
  - TYPE 2 DIABETES MELLITUS [None]
  - PANCREATITIS [None]
  - DIABETIC KETOACIDOSIS [None]
